FAERS Safety Report 8932437 (Version 2)
Quarter: 2012Q4

REPORT INFORMATION
  Report Type: 
  Country: GB (occurrence: GB)
  Receive Date: 20121128
  Receipt Date: 20121205
  Transmission Date: 20130627
  Serious: Yes (Death, Hospitalization, Other)
  Sender: FDA-Public Use
  Company Number: GB-AMGEN-GBRSP2012074806

PATIENT
  Age: 57 Year
  Sex: Male

DRUGS (8)
  1. NPLATE [Suspect]
     Indication: IDIOPATHIC THROMBOCYTOPENIC PURPURA
     Dosage: 1000 mug/kg, qwk
     Dates: start: 20120426
  2. PARACETAMOL [Concomitant]
     Dosage: 1 g, qid
  3. ROSUVASTATIN [Concomitant]
     Dosage: 20 mg, qd
  4. RAMIPRIL [Concomitant]
     Dosage: 10 mg, UNK
  5. BISOPROLOL [Concomitant]
     Dosage: 5 mg, UNK
  6. PENICILLIN V                       /00001801/ [Concomitant]
     Dosage: 250 mg, bid
  7. ASPIRIN [Concomitant]
     Dosage: 75 mg, UNK
  8. GLYCERYL TRINITRATE [Concomitant]
     Dosage: UNK UNK, prn

REACTIONS (6)
  - Aortic stenosis [Fatal]
  - Cardiac failure [Unknown]
  - Ischaemic cardiomyopathy [Unknown]
  - Coronary artery disease [Unknown]
  - Platelet disorder [Unknown]
  - Therapeutic response delayed [Unknown]
